FAERS Safety Report 9008017 (Version 2)
Quarter: 2013Q2

REPORT INFORMATION
  Report Type: Spontaneous
  Country: US (occurrence: US)
  Receive Date: 20130111
  Receipt Date: 20130617
  Transmission Date: 20140414
  Serious: Yes (Hospitalization, Other)
  Sender: FDA-Public Use
  Company Number: US-BAYER-2013-002850

PATIENT
  Age: 38 Year
  Sex: Female
  Weight: 73.92 kg

DRUGS (5)
  1. YAZ [Suspect]
     Dosage: UNK
     Dates: start: 2010, end: 2011
  2. LISINOPRIL [Concomitant]
  3. NAPROXEN [Concomitant]
  4. ATENOLOL [Concomitant]
  5. PHENTERMINE [Concomitant]

REACTIONS (9)
  - Deep vein thrombosis [Recovered/Resolved]
  - Pulmonary embolism [None]
  - Cholecystectomy [None]
  - Coronary artery occlusion [None]
  - Intracardiac thrombus [None]
  - Injury [None]
  - Pain [None]
  - Anxiety [None]
  - Pain [None]
